FAERS Safety Report 8247198-5 (Version None)
Quarter: 2012Q1

REPORT INFORMATION
  Report Type: 
  Country: None (occurrence: None)
  Receive Date: 20120330
  Receipt Date: 20120323
  Transmission Date: 20120608
  Serious: Yes (Hospitalization, Other)
  Sender: FDA-Public Use
  Company Number: US-BAYER-2011-037863

PATIENT
  Age: 26 Year
  Sex: Female
  Weight: 95.238 kg

DRUGS (16)
  1. TOPAMAX [Concomitant]
     Indication: MIGRAINE
     Dosage: 25 MG, UNK
  2. ALPRAZOLAM [Concomitant]
     Indication: ANXIETY
     Dosage: 1 TWICE A DAY
  3. NAPROXEN SOD [Concomitant]
     Dosage: 55 MG, UNK
  4. PAXIL [Concomitant]
     Indication: PANIC DISORDER
     Dosage: 10MF
  5. PAROXETINE [Concomitant]
     Dosage: 10 MG, UNK
  6. YAZ [Suspect]
     Indication: CONTRACEPTION
     Dosage: UNK
     Dates: start: 20020101, end: 20090101
  7. YASMIN [Suspect]
     Indication: PREMENSTRUAL SYNDROME
  8. HYDROCODONE BITARTRATE [Concomitant]
     Dosage: 75/325
  9. LEXAPRO [Concomitant]
     Dosage: 20 MG, QD
  10. CEPHALEXIN [Concomitant]
     Dosage: 25 MG, UNK
  11. ANAPROX DS [Concomitant]
  12. YAZ [Suspect]
     Indication: PREMENSTRUAL SYNDROME
  13. YASMIN [Suspect]
     Indication: CONTRACEPTION
     Dosage: UNK
     Dates: start: 20020101, end: 20090101
  14. HYDROCODONE BITARTRATE AND ACETAMINOPHEN [Concomitant]
     Dosage: 7.5MG/500MG
  15. DICYCLOMINE [Concomitant]
     Dosage: 10 MG, UNK
  16. INDERAL [Concomitant]
     Dosage: 40 MG, BID

REACTIONS (9)
  - PAIN [None]
  - EMOTIONAL DISTRESS [None]
  - ANHEDONIA [None]
  - INTERNAL INJURY [None]
  - ANXIETY [None]
  - GENERAL PHYSICAL HEALTH DETERIORATION [None]
  - CHOLECYSTECTOMY [None]
  - ORGAN FAILURE [None]
  - CHOLECYSTITIS CHRONIC [None]
